APPROVED DRUG PRODUCT: XENLETA
Active Ingredient: LEFAMULIN ACETATE
Strength: EQ 150MG BASE/15ML (EQ 10MG BASE/ML)
Dosage Form/Route: SOLUTION;INTRAVENOUS
Application: N211673 | Product #001
Applicant: HONG KONG KING FRIEND INDUSTRIAL CO LTD
Approved: Aug 19, 2019 | RLD: Yes | RS: Yes | Type: RX

PATENTS:
Patent 12121582 | Expires: Jun 14, 2036
Patent 8071643 | Expires: Mar 25, 2033
Patent 8153689 | Expires: Mar 19, 2028

EXCLUSIVITY:
Code: NCE | Date: Aug 19, 2024
Code: GAIN | Date: Aug 19, 2029